FAERS Safety Report 8114239-5 (Version None)
Quarter: 2012Q1

REPORT INFORMATION
  Report Type: 
  Country: None (occurrence: None)
  Receive Date: 20120206
  Receipt Date: 20120123
  Transmission Date: 20120608
  Serious: Yes (Hospitalization, Other)
  Sender: FDA-Public Use
  Company Number: AR-AMGEN-ARGSP2012005930

PATIENT
  Age: 82 Year
  Sex: Female

DRUGS (5)
  1. CORTICOSTEROIDS [Concomitant]
     Dosage: UNK
  2. CALCIUM [Concomitant]
     Dosage: UNK
  3. ENALAPRIL MALEATE [Concomitant]
     Dosage: UNK
  4. ENBREL [Suspect]
     Indication: RHEUMATOID ARTHRITIS
     Dosage: 50 MG, WEEKLY
     Route: 058
     Dates: start: 20061127, end: 20110901
  5. VITAMINS                           /90003601/ [Concomitant]
     Dosage: UNK

REACTIONS (4)
  - UPPER EXTREMITY MASS [None]
  - PYREXIA [None]
  - TUBERCULOSIS [None]
  - LOWER EXTREMITY MASS [None]
